FAERS Safety Report 4759368-9 (Version None)
Quarter: 2005Q3

REPORT INFORMATION
  Report Type: 
  Country: None (occurrence: None)
  Receive Date: 20050831
  Receipt Date: 20050822
  Transmission Date: 20060218
  Serious: Yes (Other)
  Sender: FDA-Public Use
  Company Number: 200513389BCC

PATIENT
  Sex: Male

DRUGS (3)
  1. ALEVE (CAPLET) [Suspect]
     Indication: SPINAL DISORDER
     Dosage: NI, PRN, ORAL
     Route: 048
  2. ASPIRIN [Suspect]
     Indication: ANALGESIC EFFECT
     Dosage: NI, ORAL
     Route: 048
  3. ASPIRIN [Suspect]
     Indication: SPINAL DISORDER
     Dosage: NI, ORAL
     Route: 048

REACTIONS (4)
  - HIATUS HERNIA [None]
  - METAPLASIA [None]
  - OESOPHAGEAL STENOSIS [None]
  - OESOPHAGEAL ULCER [None]
